FAERS Safety Report 7761235-3 (Version None)
Quarter: 2011Q3

REPORT INFORMATION
  Report Type: 
  Country: None (occurrence: None)
  Receive Date: 20110920
  Receipt Date: 20110908
  Transmission Date: 20111222
  Serious: Yes (Other)
  Sender: FDA-Public Use
  Company Number: IT-JNJFOC-20110403554

PATIENT
  Sex: Male
  Weight: 34.8 kg

DRUGS (7)
  1. REMICADE [Suspect]
     Route: 042
     Dates: start: 20110421
  2. PREDNISONE [Concomitant]
  3. REMICADE [Suspect]
     Indication: CROHN'S DISEASE
     Route: 042
     Dates: start: 20101104
  4. MUPIROCIN [Concomitant]
  5. AZATHIOPRINE [Concomitant]
  6. ANTIBIOTIC NOS [Concomitant]
  7. REMICADE [Suspect]
     Route: 042
     Dates: start: 20110222

REACTIONS (1)
  - CROHN'S DISEASE [None]
